FAERS Safety Report 25935392 (Version 1)
Quarter: 2025Q4

REPORT INFORMATION
  Report Type: Spontaneous
  Country: US (occurrence: US)
  Receive Date: 20251017
  Receipt Date: 20251017
  Transmission Date: 20260117
  Serious: No
  Sender: SANOFI AVENTIS
  Company Number: US-SA-2025SA309096

PATIENT
  Age: 40 Year

DRUGS (2)
  1. MULTAQ [Suspect]
     Active Substance: DRONEDARONE
     Indication: Arthralgia
     Dosage: 400 MG, BID
     Route: 048
  2. MULTAQ [Suspect]
     Active Substance: DRONEDARONE
     Indication: Musculoskeletal disorder

REACTIONS (1)
  - Off label use [Unknown]
